FAERS Safety Report 19667161 (Version 1)
Quarter: 2021Q3

REPORT INFORMATION
  Report Type: Spontaneous
  Country: US (occurrence: US)
  Receive Date: 20210806
  Receipt Date: 20210806
  Transmission Date: 20211014
  Serious: No
  Sender: FDA-Public Use
  Company Number: US-ACCORD-227331

PATIENT
  Sex: Female

DRUGS (1)
  1. DOXAZOSIN [Suspect]
     Active Substance: DOXAZOSIN MESYLATE
     Indication: HYPERTENSION
     Dosage: DAILY, WHITE, ROUND, SCORED TABLET
     Route: 048

REACTIONS (3)
  - Fluid retention [Unknown]
  - Swelling face [Unknown]
  - Peripheral swelling [Unknown]
